FAERS Safety Report 8940427 (Version 2)
Quarter: 2013Q1

REPORT INFORMATION
  Report Type: Spontaneous
  Country: FR (occurrence: FR)
  Receive Date: 20121203
  Receipt Date: 20130125
  Transmission Date: 20140127
  Serious: Yes (Disabling)
  Sender: FDA-Public Use
  Company Number: FR-ASTRAZENECA-2012SE89399

PATIENT
  Age: 71 Year
  Sex: Male
  Weight: 73.5 kg

DRUGS (6)
  1. CRESTOR [Suspect]
     Route: 048
     Dates: start: 201206
  2. DIAMICRON [Concomitant]
  3. METFORMINE [Concomitant]
  4. DUOPLAVIN [Concomitant]
  5. EXFORGE [Concomitant]
  6. CARDENSIEL [Concomitant]

REACTIONS (6)
  - Oedema [Recovered/Resolved]
  - Erythema [Recovered/Resolved]
  - Burning sensation [Recovered/Resolved]
  - Skin fissures [Recovered/Resolved]
  - Skin exfoliation [Recovered/Resolved]
  - Skin wrinkling [Recovered/Resolved]
